FAERS Safety Report 6493040-2 (Version None)
Quarter: 2009Q4

REPORT INFORMATION
  Report Type: 
  Country: None (occurrence: None)
  Receive Date: 20091214
  Receipt Date: 20091204
  Transmission Date: 20100525
  Serious: Yes (Life-Threatening, Hospitalization)
  Sender: FDA-Public Use
  Company Number: GXKR2009GB13138

PATIENT
  Age: 39 Year
  Sex: Male

DRUGS (3)
  1. OMEPRAZOLE [Suspect]
     Indication: GASTRITIS
     Dosage: 20 MG, QD
     Route: 048
     Dates: start: 20090911, end: 20091124
  2. WARFARIN (NGX) [Interacting]
     Indication: DEEP VEIN THROMBOSIS
     Dosage: 5 MG, QD
     Route: 048
  3. OLANZAPINE [Interacting]
     Indication: SCHIZOPHRENIA
     Dosage: 15 MG, QD
     Route: 048

REACTIONS (5)
  - HAEMODIALYSIS [None]
  - MALAISE [None]
  - MYALGIA [None]
  - RENAL FAILURE ACUTE [None]
  - RHABDOMYOLYSIS [None]
